FAERS Safety Report 10010018 (Version 2)
Quarter: 2014Q1

REPORT INFORMATION
  Report Type: Spontaneous
  Country: US (occurrence: US)
  Receive Date: 20140312
  Receipt Date: 20140312
  Transmission Date: 20141002
  Serious: No
  Sender: FDA-Public Use
  Company Number: US-INCYTE CORPORATION-2013IN000813

PATIENT
  Age: 73 Year
  Sex: Female

DRUGS (8)
  1. JAKAFI [Suspect]
     Indication: MYELOFIBROSIS
     Dosage: 10 MG, BID
     Dates: start: 20130325
  2. BABY ASPIRIN [Concomitant]
  3. HYDROXYCHLOROQUINE [Concomitant]
  4. PLAQUENIL [Concomitant]
  5. OMEPRAZOL [Concomitant]
  6. METOPROLOL [Concomitant]
  7. ALLOPURINOL [Concomitant]
  8. LOSARTAN [Concomitant]

REACTIONS (7)
  - Pollakiuria [Unknown]
  - Head discomfort [Unknown]
  - Sensation of heaviness [Unknown]
  - Hypoaesthesia [Unknown]
  - Dry skin [Unknown]
  - Binge eating [Unknown]
  - Headache [Unknown]
